FAERS Safety Report 22165636 (Version 3)
Quarter: 2023Q2

REPORT INFORMATION
  Report Type: Spontaneous
  Country: JP (occurrence: JP)
  Receive Date: 20230403
  Receipt Date: 20230626
  Transmission Date: 20230722
  Serious: Yes (Life-Threatening, Hospitalization, Other)
  Sender: FDA-Public Use
  Company Number: JP-CHUGAI-2023011244

PATIENT
  Age: 61 Year
  Sex: Female
  Weight: 42 kg

DRUGS (15)
  1. AVASTIN [Suspect]
     Active Substance: BEVACIZUMAB
     Indication: Rectal cancer
     Dosage: 350 MILLIGRAM, ONCE/3WEEKS
     Route: 041
     Dates: start: 20230208
  2. ACTEMRA [Suspect]
     Active Substance: TOCILIZUMAB
     Indication: Rheumatoid arthritis
     Dosage: 162 MILLIGRAM
     Route: 058
     Dates: start: 20201002
  3. XELODA [Suspect]
     Active Substance: CAPECITABINE
     Indication: Rectal cancer
     Dosage: 1200 MILLIGRAM, BID
     Route: 048
     Dates: start: 20230208, end: 20230327
  4. OXALIPLATIN [Suspect]
     Active Substance: OXALIPLATIN
     Indication: Rectal cancer recurrent
     Dosage: UNK
     Route: 041
     Dates: start: 20200515, end: 20201111
  5. OXALIPLATIN [Suspect]
     Active Substance: OXALIPLATIN
     Indication: Rectal cancer
     Dosage: UNK
     Route: 041
     Dates: start: 20220803, end: 20230103
  6. OXALIPLATIN [Suspect]
     Active Substance: OXALIPLATIN
     Dosage: 150 MILLIGRAM, ONCE/3WEEKS
     Route: 041
     Dates: start: 20230208, end: 20230322
  7. GIMERACIL\OTERACIL\TEGAFUR [Concomitant]
     Active Substance: GIMERACIL\OTERACIL\OTERACIL POTASSIUM\TEGAFUR
     Indication: Rectal cancer
     Dosage: UNK
     Route: 041
  8. CELECOXIB [Concomitant]
     Active Substance: CELECOXIB
     Dosage: 400MG/DAY
     Route: 048
     Dates: start: 20200411
  9. CELECOXIB [Concomitant]
     Active Substance: CELECOXIB
     Dosage: 400MG/DAY
     Route: 048
     Dates: start: 202207
  10. PALONOSETRON HYDROCHLORIDE [Concomitant]
     Active Substance: PALONOSETRON HYDROCHLORIDE
     Dosage: UNK
     Route: 065
     Dates: start: 20230208, end: 20230322
  11. DEXAMETHASONE SODIUM PHOSPHATE [Concomitant]
     Active Substance: DEXAMETHASONE SODIUM PHOSPHATE
     Dosage: UNK
     Route: 065
     Dates: start: 20230208, end: 20230322
  12. APREPITANT [Concomitant]
     Active Substance: APREPITANT
     Dosage: UNK
     Route: 065
     Dates: start: 20230208, end: 20230322
  13. IGURATIMOD [Concomitant]
     Active Substance: IGURATIMOD
     Dosage: UNK
     Route: 065
     Dates: start: 20200411
  14. OXALIPLATIN [Concomitant]
     Active Substance: OXALIPLATIN
     Indication: Rectal cancer
     Dosage: UNK
     Route: 041
  15. OXALIPLATIN [Concomitant]
     Active Substance: OXALIPLATIN
     Indication: Rectal cancer recurrent

REACTIONS (8)
  - Peritonitis [Recovered/Resolved]
  - Rectal cancer recurrent [Unknown]
  - White blood cell count decreased [Recovered/Resolved]
  - Pyometra [Recovered/Resolved]
  - Neutrophil count decreased [Recovered/Resolved]
  - Klebsiella infection [Unknown]
  - Platelet count decreased [Recovered/Resolved]
  - Disseminated intravascular coagulation [Recovered/Resolved]

NARRATIVE: CASE EVENT DATE: 20230213
